FAERS Safety Report 7712529-9 (Version None)
Quarter: 2011Q3

REPORT INFORMATION
  Report Type: 
  Country: None (occurrence: None)
  Receive Date: 20110822
  Receipt Date: 20110804
  Transmission Date: 20111222
  Serious: No
  Sender: FDA-Public Use
  Company Number: PHHY2010CH70425

PATIENT
  Age: 48 Year
  Sex: Female

DRUGS (3)
  1. LORAZEPAM [Suspect]
     Indication: ANXIETY
     Dosage: 5 MG/D
  2. TIZANIDINE HYDROCHLORIDE [Suspect]
     Indication: MUSCLE SPASMS
     Dosage: 4 MG
  3. CYMBALTA [Suspect]
     Indication: DEPRESSION
     Dosage: 90 MG

REACTIONS (4)
  - MATERNAL EXPOSURE DURING PREGNANCY [None]
  - PLACENTA PRAEVIA [None]
  - DEPRESSION [None]
  - PREGNANCY [None]
